FAERS Safety Report 9771775 (Version 1)
Quarter: 2013Q3

REPORT INFORMATION
  Report Type: Spontaneous
  Country: US (occurrence: None)
  Receive Date: 20130916
  Receipt Date: 20130916
  Transmission Date: 20140515
  Serious: Yes (Hospitalization)
  Sender: FDA-Public Use
  Company Number: VAL_02422_2013

PATIENT
  Age: 84 Year
  Sex: Female
  Weight: 61.4 kg

DRUGS (13)
  1. BENAZEPRIL [Suspect]
     Indication: PRODUCT USED FOR UNKNOWN INDICATION
     Dosage: (DF)
  2. ANASTROZOLE [Suspect]
     Indication: BREAST CANCER
     Route: 048
     Dates: start: 20090311
  3. DILTIAZEM [Suspect]
     Indication: PRODUCT USED FOR UNKNOWN INDICATION
     Dosage: (DF [REGIMEN #1])
  4. FUROSEMIDE [Concomitant]
  5. CALCIUM [Concomitant]
  6. LEVOTHYROXINE [Concomitant]
  7. FLUTICASONE W/SALMETEROL [Concomitant]
  8. TIOTROPIUM [Concomitant]
  9. POTASSIUM CHLORIDE [Concomitant]
  10. OMEPRAZOLE [Concomitant]
  11. HERBAL EXTRACT NOS [Concomitant]
  12. CITRACAL /00751520/ [Concomitant]
  13. METAMUCIL /00029101/ [Concomitant]

REACTIONS (12)
  - Syncope [None]
  - Fall [None]
  - Extrasystoles [None]
  - No therapeutic response [None]
  - Breast cancer [None]
  - Syncope [None]
  - Contusion [None]
  - Ventricular arrhythmia [None]
  - Wandering pacemaker [None]
  - Supraventricular extrasystoles [None]
  - Supraventricular extrasystoles [None]
  - Malignant neoplasm progression [None]
